FAERS Safety Report 15004130 (Version 1)
Quarter: 2018Q2

REPORT INFORMATION
  Report Type: Spontaneous
  Country: US (occurrence: US)
  Receive Date: 20180524
  Receipt Date: 20180524
  Transmission Date: 20180711
  Serious: Yes (Other)
  Sender: FDA-Public Use
  Company Number: None

PATIENT
  Age: 34 Year
  Sex: Female
  Weight: 100.8 kg

DRUGS (1)
  1. STELARA [Suspect]
     Active Substance: USTEKINUMAB
     Indication: CROHN^S DISEASE
     Dosage: QUANTITY:1 INJECTION(S);OTHER FREQUENCY:1 EVERY 8 WEEKS;?
     Route: 061
     Dates: start: 20170815, end: 20180522

REACTIONS (8)
  - Nausea [None]
  - Visual impairment [None]
  - Vomiting [None]
  - Diarrhoea [None]
  - Headache [None]
  - Condition aggravated [None]
  - Impaired work ability [None]
  - Dizziness [None]

NARRATIVE: CASE EVENT DATE: 20170910
